FAERS Safety Report 6955922-4 (Version None)
Quarter: 2010Q3

REPORT INFORMATION
  Report Type: 
  Country: None (occurrence: None)
  Receive Date: 20100826
  Receipt Date: 20100826
  Transmission Date: 20110219
  Serious: No
  Sender: FDA-Public Use
  Company Number: None

PATIENT
  Age: 47 Year
  Sex: Male
  Weight: 95.2554 kg

DRUGS (2)
  1. PROGRAF [Suspect]
     Indication: IMMUNOSUPPRESSANT DRUG THERAPY
     Dosage: 8-9 MG TITRATED TO 2 MG NOW BID PO
     Route: 048
     Dates: start: 20100321, end: 20100824
  2. PROGRAF [Suspect]
     Indication: RENAL TRANSPLANT
     Dosage: 8-9 MG TITRATED TO 2 MG NOW BID PO
     Route: 048
     Dates: start: 20100321, end: 20100824

REACTIONS (2)
  - BLOOD ALKALINE PHOSPHATASE INCREASED [None]
  - POST TRANSPLANT DISTAL LIMB SYNDROME [None]
